FAERS Safety Report 9167650 (Version 3)
Quarter: 2013Q2

REPORT INFORMATION
  Report Type: Spontaneous
  Country: JP (occurrence: JP)
  Receive Date: 20130318
  Receipt Date: 20130520
  Transmission Date: 20140414
  Serious: Yes (Other)
  Sender: FDA-Public Use
  Company Number: PHHY2013JP026078

PATIENT
  Sex: Male

DRUGS (2)
  1. NEORAL [Suspect]
     Indication: NEPHROTIC SYNDROME
     Dosage: 75 MG, DAILY
     Dates: end: 20130402
  2. PREDNISOLONE [Concomitant]
     Indication: NEPHROTIC SYNDROME
     Dosage: 27.5 MG, UNK
     Route: 048
     Dates: start: 201006

REACTIONS (4)
  - Parkinsonism [Not Recovered/Not Resolved]
  - Tremor [Not Recovered/Not Resolved]
  - Movement disorder [Not Recovered/Not Resolved]
  - Muscle rigidity [Not Recovered/Not Resolved]
